FAERS Safety Report 21129985 (Version 1)
Quarter: 2022Q3

REPORT INFORMATION
  Report Type: Spontaneous
  Country: US (occurrence: US)
  Receive Date: 20220726
  Receipt Date: 20220726
  Transmission Date: 20221026
  Serious: No
  Sender: FDA-Public Use
  Company Number: US-009507513-2101USA001176

PATIENT
  Sex: Female

DRUGS (3)
  1. FOSAMAX [Suspect]
     Active Substance: ALENDRONATE SODIUM
     Indication: Osteoporosis
     Dosage: UNK
  2. COZAAR [Suspect]
     Active Substance: LOSARTAN POTASSIUM
     Dosage: UNK
     Route: 048
  3. TYMLOS [Concomitant]
     Active Substance: ABALOPARATIDE
     Dosage: UNK

REACTIONS (23)
  - Neck pain [Unknown]
  - Emotional distress [Unknown]
  - Neck pain [Unknown]
  - Emotional distress [Unknown]
  - Back pain [Unknown]
  - Musculoskeletal chest pain [Unknown]
  - Back pain [Unknown]
  - Musculoskeletal chest pain [Unknown]
  - Hypotension [Unknown]
  - Ear pain [Unknown]
  - Pain [Unknown]
  - Somnolence [Unknown]
  - Arthropathy [Unknown]
  - Musculoskeletal discomfort [Unknown]
  - Synovial cyst [Unknown]
  - Abdominal discomfort [Unknown]
  - Headache [Unknown]
  - Asthenia [Unknown]
  - Arthralgia [Unknown]
  - Back pain [Unknown]
  - Lethargy [Unknown]
  - Insomnia [Unknown]
  - Ejection fraction decreased [Unknown]
